FAERS Safety Report 6657308-9 (Version None)
Quarter: 2010Q1

REPORT INFORMATION
  Report Type: 
  Country: None (occurrence: None)
  Receive Date: 20100330
  Receipt Date: 20100325
  Transmission Date: 20100710
  Serious: Yes (Other)
  Sender: FDA-Public Use
  Company Number: BR-BRISTOL-MYERS SQUIBB COMPANY-15020621

PATIENT
  Sex: Female

DRUGS (3)
  1. REYATAZ [Suspect]
     Dosage: DOSE REDUCED TO 200MG A DAY
  2. RITONAVIR [Suspect]
  3. BIOVIR [Concomitant]

REACTIONS (2)
  - ANGIOEDEMA [None]
  - RASH [None]
